FAERS Safety Report 4293372-2 (Version None)
Quarter: 2004Q1

REPORT INFORMATION
  Report Type: 
  Country: None (occurrence: None)
  Receive Date: 20040211
  Receipt Date: 20040211
  Transmission Date: 20041129
  Serious: Yes (Life-Threatening, Other)
  Sender: FDA-Public Use
  Company Number: None

PATIENT
  Age: 38 Year
  Sex: Male
  Weight: 74.8435 kg

DRUGS (6)
  1. RISPERODOL 1 MG TAB [Suspect]
     Indication: SCHIZOPHRENIA, PARANOID TYPE
     Dosage: 1 DAY 2 NIGHTLY
     Dates: start: 19981001
  2. RISPERODOL 1 MG TAB [Suspect]
     Indication: THINKING ABNORMAL
     Dosage: 1 DAY 2 NIGHTLY
     Dates: start: 19981001
  3. CRIXIVAN [Concomitant]
  4. ZERIT [Concomitant]
  5. EPIVIR [Concomitant]
  6. MECLIZINE [Concomitant]

REACTIONS (1)
  - GRAND MAL CONVULSION [None]
